FAERS Safety Report 14586561 (Version 1)
Quarter: 2018Q1

REPORT INFORMATION
  Report Type: Spontaneous
  Country: US (occurrence: US)
  Receive Date: 20180228
  Receipt Date: 20180228
  Transmission Date: 20180509
  Serious: Yes (Disabling, Other)
  Sender: FDA-Public Use
  Company Number: None

PATIENT
  Age: 23 Year
  Sex: Male
  Weight: 70 kg

DRUGS (1)
  1. BLEOMYCIN [Suspect]
     Active Substance: BLEOMYCIN SULFATE
     Indication: SKIN PAPILLOMA
     Dosage: ?          OTHER STRENGTH:CC;QUANTITY:1 INJECTION(S);?
     Route: 058
     Dates: start: 20180119, end: 20180119

REACTIONS (12)
  - Hepatic pain [None]
  - Myalgia [None]
  - Chromaturia [None]
  - Cough [None]
  - Rhinorrhoea [None]
  - Weight decreased [None]
  - Bone pain [None]
  - Pain of skin [None]
  - Hyperhidrosis [None]
  - Injection site hypoaesthesia [None]
  - Pyrexia [None]
  - Dyspnoea [None]

NARRATIVE: CASE EVENT DATE: 20180119
